FAERS Safety Report 8054866-7 (Version None)
Quarter: 2012Q1

REPORT INFORMATION
  Report Type: 
  Country: None (occurrence: None)
  Receive Date: 20120119
  Receipt Date: 20120112
  Transmission Date: 20120608
  Serious: No
  Sender: FDA-Public Use
  Company Number: US-JNJFOC-20120104961

PATIENT
  Age: 44 Year
  Sex: Male

DRUGS (2)
  1. INVEGA SUSTENNA [Suspect]
     Indication: PRODUCT USED FOR UNKNOWN INDICATION
     Route: 030
     Dates: start: 20120107
  2. ACETAMINOPHEN [Concomitant]
     Indication: INJECTION SITE PAIN
     Route: 048
     Dates: start: 20120109

REACTIONS (1)
  - INJECTION SITE PAIN [None]
